FAERS Safety Report 7587255-X (Version None)
Quarter: 2011Q3

REPORT INFORMATION
  Report Type: 
  Country: None (occurrence: None)
  Receive Date: 20110701
  Receipt Date: 20110622
  Transmission Date: 20111222
  Serious: Yes (Hospitalization)
  Sender: FDA-Public Use
  Company Number: PHHY2011GB55038

PATIENT
  Age: 62 Year
  Sex: Male

DRUGS (18)
  1. BEZAFIBRATE [Concomitant]
     Dosage: 400 MG, BID
  2. ETANERCEPT [Concomitant]
     Dosage: UNK
  3. LISINOPRIL [Concomitant]
     Dosage: 5 MG, QD
  4. METHOTREXATE [Suspect]
     Indication: RHEUMATOID ARTHRITIS
     Dosage: 10 MG, QD
     Dates: end: 20110527
  5. ADALAT CC [Concomitant]
     Dosage: UNK
  6. CALCICHEW [Concomitant]
     Dosage: 1 DF, BID
  7. TRAMADOL HCL [Concomitant]
     Dosage: UNK
  8. WARFARIN SODIUM [Concomitant]
     Dosage: UNK
  9. PRAVASTATIN [Concomitant]
     Dosage: 40 MG, QD
  10. FOLIC ACID [Concomitant]
     Dosage: 5 MG, QW
  11. LEFLUNOMIDE [Suspect]
     Indication: RHEUMATOID ARTHRITIS
     Dosage: 20 MG, QD
     Dates: end: 20110527
  12. MEBEVERINE [Concomitant]
     Dosage: 200 MG, BID
  13. PREDNISOLONE [Concomitant]
     Dosage: 15 MG, UNK
  14. PREDNISOLONE [Concomitant]
     Dosage: 7.5 MG, UNK
  15. ATENOLOL [Concomitant]
     Dosage: 50 MG, UNK
  16. GABAPENTIN [Concomitant]
     Dosage: 1 DF, TID
  17. NITROGLYCERIN [Concomitant]
     Dosage: UNK
  18. OMEPRAZOLE [Concomitant]
     Dosage: 40 MG, QD

REACTIONS (4)
  - BONE MARROW TOXICITY [None]
  - PANCYTOPENIA [None]
  - ANAEMIA [None]
  - RECTAL HAEMORRHAGE [None]
